FAERS Safety Report 20012923 (Version 2)
Quarter: 2021Q4

REPORT INFORMATION
  Report Type: Spontaneous
  Country: CN (occurrence: CN)
  Receive Date: 20211029
  Receipt Date: 20211119
  Transmission Date: 20220303
  Serious: Yes (Other)
  Sender: FDA-Public Use
  Company Number: CN-ORGANON-O2110CHN002419

PATIENT
  Sex: Male

DRUGS (1)
  1. PROPECIA [Suspect]
     Active Substance: FINASTERIDE
     Dosage: UNK
     Route: 048
     Dates: start: 202107, end: 2021

REACTIONS (6)
  - Mental impairment [Not Recovered/Not Resolved]
  - Suicidal ideation [Not Recovered/Not Resolved]
  - Erectile dysfunction [Not Recovered/Not Resolved]
  - Headache [Not Recovered/Not Resolved]
  - Depressive symptom [Not Recovered/Not Resolved]
  - Depressed mood [Not Recovered/Not Resolved]

NARRATIVE: CASE EVENT DATE: 20210701
